FAERS Safety Report 14770098 (Version 1)
Quarter: 2018Q2

REPORT INFORMATION
  Report Type: Spontaneous
  Country: US (occurrence: US)
  Receive Date: 20180417
  Receipt Date: 20180417
  Transmission Date: 20180711
  Serious: No
  Sender: FDA-Public Use
  Company Number: US-DSJP-DSU-2018-100294

PATIENT
  Age: 64 Year
  Sex: Male

DRUGS (3)
  1. MORPHABOND ER [Suspect]
     Active Substance: MORPHINE SULFATE
     Indication: PRODUCT USED FOR UNKNOWN INDICATION
     Dosage: 15 MG, BID
     Route: 065
     Dates: start: 20171205
  2. NORCO [Concomitant]
     Active Substance: ACETAMINOPHEN\HYDROCODONE BITARTRATE
     Indication: PAIN
     Dosage: 1 DF, QD
     Route: 048
     Dates: start: 20180115
  3. MORPHABOND ER [Suspect]
     Active Substance: MORPHINE SULFATE
     Dosage: 1 DF, QD (AT NIGHT)
     Route: 065

REACTIONS (2)
  - Somnolence [Recovering/Resolving]
  - Feeling abnormal [Recovering/Resolving]

NARRATIVE: CASE EVENT DATE: 20171209
